FAERS Safety Report 17355961 (Version 1)
Quarter: 2020Q1

REPORT INFORMATION
  Report Type: Spontaneous
  Country: SE (occurrence: SE)
  Receive Date: 20200131
  Receipt Date: 20200131
  Transmission Date: 20200409
  Serious: Yes (Hospitalization)
  Sender: FDA-Public Use
  Company Number: SE-MYLANLABS-2020M1010964

PATIENT
  Age: 34 Year
  Sex: Female

DRUGS (5)
  1. LERGIGAN 25 MG FILMDRAGERADE TABLETTER [Suspect]
     Active Substance: PROMETHAZINE HYDROCHLORIDE
     Indication: PRODUCT USED FOR UNKNOWN INDICATION
     Dosage: UNK
     Route: 048
     Dates: start: 20181003, end: 20181003
  2. QUETIAPINE. [Suspect]
     Active Substance: QUETIAPINE
     Indication: PRODUCT USED FOR UNKNOWN INDICATION
     Dosage: ^300 MG DEPOT OCH 300 MG VANLIGA TABLETTER^
     Route: 048
     Dates: start: 20181003, end: 20181003
  3. DULOXETINE. [Concomitant]
     Active Substance: DULOXETINE
     Dosage: ^90 MG/DAG^
  4. ZOPICLONE [Suspect]
     Active Substance: ZOPICLONE
     Indication: PRODUCT USED FOR UNKNOWN INDICATION
     Dosage: UNK
     Route: 048
     Dates: start: 20181003, end: 20181003
  5. RISPERDAL [Suspect]
     Active Substance: RISPERIDONE
     Dosage: UNK
     Route: 048
     Dates: start: 20181003, end: 20181003

REACTIONS (4)
  - Electrocardiogram QT prolonged [Unknown]
  - Intentional self-injury [Unknown]
  - Hypopnoea [Unknown]
  - Intentional overdose [Unknown]

NARRATIVE: CASE EVENT DATE: 20181003
